FAERS Safety Report 6676754-0 (Version None)
Quarter: 2010Q2

REPORT INFORMATION
  Report Type: 
  Country: None (occurrence: None)
  Receive Date: 20100412
  Receipt Date: 20100401
  Transmission Date: 20101027
  Serious: Yes (Other)
  Sender: FDA-Public Use
  Company Number: US-BAYER-201010221NA

PATIENT
  Age: 44 Year
  Sex: Female
  Weight: 111 kg

DRUGS (54)
  1. MAGNEVIST [Suspect]
     Indication: NUCLEAR MAGNETIC RESONANCE IMAGING
     Dosage: TOTAL DAILY DOSE: 20 ML
     Dates: start: 20060802, end: 20060802
  2. MAGNEVIST [Suspect]
     Dosage: TOTAL DAILY DOSE: 20 ML
     Dates: start: 20060809, end: 20060809
  3. MAGNEVIST [Suspect]
     Dosage: TOTAL DAILY DOSE: 20 ML
     Dates: start: 20061020, end: 20061020
  4. MAGNEVIST [Suspect]
     Dosage: AS USED: 20 ML
     Dates: start: 20070114, end: 20070114
  5. MAGNEVIST [Suspect]
     Dosage: AS USED: 20 ML
     Dates: start: 20071113, end: 20071113
  6. MAGNEVIST [Suspect]
     Dosage: PER SUMMONS
     Dates: start: 20071013, end: 20071013
  7. MAGNEVIST [Suspect]
     Dosage: AS USED: 20 ML
     Dates: start: 20061230, end: 20061230
  8. MAGNEVIST [Suspect]
     Dosage: AS USED: 20 ML
     Dates: start: 20080601, end: 20080601
  9. OMNISCAN [Suspect]
     Indication: NUCLEAR MAGNETIC RESONANCE IMAGING BRAIN
     Dosage: {/= 20ML
     Dates: start: 20060116, end: 20060116
  10. OPTIMARK [Suspect]
     Indication: NUCLEAR MAGNETIC RESONANCE IMAGING BRAIN
     Dosage: AS USED: 20 ML
     Dates: start: 20040506, end: 20040506
  11. PROHANCE [Suspect]
     Indication: NUCLEAR MAGNETIC RESONANCE IMAGING BRAIN
     Dosage: TOTAL DAILY DOSE: 20 ML
     Dates: start: 20040506, end: 20040506
  12. MULTIHANCE [Suspect]
     Indication: NUCLEAR MAGNETIC RESONANCE IMAGING
  13. UNKNOWN GADOLINIUM BASED CONTRAST AGENT [Suspect]
     Indication: NUCLEAR MAGNETIC RESONANCE IMAGING
     Dates: start: 20080815, end: 20080815
  14. UNKNOWN GADOLINIUM BASED CONTRAST AGENT [Suspect]
     Dates: start: 20080516, end: 20080516
  15. UNKNOWN GADOLINIUM BASED CONTRAST AGENT [Suspect]
     Dates: start: 20071219, end: 20071219
  16. UNKNOWN GADOLINIUM BASED CONTRAST AGENT [Suspect]
     Dates: start: 20071004, end: 20071004
  17. UNKNOWN GADOLINIUM BASED CONTRAST AGENT [Suspect]
     Dates: start: 20071025, end: 20071025
  18. UNKNOWN GADOLINIUM BASED CONTRAST AGENT [Suspect]
     Dates: start: 20060521, end: 20060521
  19. UNKNOWN GADOLINIUM BASED CONTRAST AGENT [Suspect]
     Dates: start: 20060712, end: 20060712
  20. UNKNOWN GADOLINIUM BASED CONTRAST AGENT [Suspect]
     Dates: start: 20061020, end: 20061020
  21. UNKNOWN GADOLINIUM BASED CONTRAST AGENT [Suspect]
     Dates: start: 20061228, end: 20061228
  22. UNKNOWN GADOLINIUM BASED CONTRAST AGENT [Suspect]
     Dates: start: 20061229, end: 20061229
  23. UNKNOWN GADOLINIUM BASED CONTRAST AGENT [Suspect]
     Dates: start: 20070102, end: 20070102
  24. UNKNOWN GADOLINIUM BASED CONTRAST AGENT [Suspect]
     Dates: start: 20070114, end: 20070114
  25. UNKNOWN GADOLINIUM BASED CONTRAST AGENT [Suspect]
     Dates: start: 20081017, end: 20081017
  26. UNKNOWN GADOLINIUM BASED CONTRAST AGENT [Suspect]
     Dates: start: 20081121, end: 20081121
  27. UNKNOWN GADOLINIUM BASED CONTRAST AGENT [Suspect]
     Dates: start: 20041220, end: 20041220
  28. UNKNOWN GADOLINIUM BASED CONTRAST AGENT [Suspect]
     Dates: start: 20050218, end: 20050218
  29. UNKNOWN GADOLINIUM BASED CONTRAST AGENT [Suspect]
     Dates: start: 20050530, end: 20050530
  30. UNKNOWN GADOLINIUM BASED CONTRAST AGENT [Suspect]
     Dates: start: 20050608, end: 20050608
  31. UNKNOWN GADOLINIUM BASED CONTRAST AGENT [Suspect]
     Dates: start: 20050629, end: 20050629
  32. UNKNOWN GADOLINIUM BASED CONTRAST AGENT [Suspect]
     Dates: start: 20060216, end: 20060216
  33. UNKNOWN GADOLINIUM BASED CONTRAST AGENT [Suspect]
     Dates: start: 20060217, end: 20060217
  34. UNKNOWN GADOLINIUM BASED CONTRAST AGENT [Suspect]
     Dates: start: 20060330, end: 20060330
  35. UNKNOWN GADOLINIUM BASED CONTRAST AGENT [Suspect]
     Dates: start: 20090520, end: 20090520
  36. UNKNOWN GADOLINIUM BASED CONTRAST AGENT [Suspect]
     Dates: start: 20090522, end: 20090522
  37. UNKNOWN GADOLINIUM BASED CONTRAST AGENT [Suspect]
     Dates: start: 20080427, end: 20080427
  38. UNKNOWN GADOLINIUM BASED CONTRAST AGENT [Suspect]
     Dates: start: 20080530, end: 20080530
  39. UNKNOWN GADOLINIUM BASED CONTRAST AGENT [Suspect]
     Dates: start: 20080710, end: 20080710
  40. UNKNOWN GADOLINIUM BASED CONTRAST AGENT [Suspect]
     Dates: start: 20080601, end: 20080601
  41. CRESTOR [Concomitant]
  42. LIPITOR [Concomitant]
  43. PROVENTIL [Concomitant]
  44. COMBIVENT [Concomitant]
  45. FLOVENT [Concomitant]
  46. SYNTHROID [Concomitant]
  47. HYZAAR [Concomitant]
  48. METFORMIN HCL [Concomitant]
  49. SINGULAIR [Concomitant]
  50. ATENOLOL [Concomitant]
  51. NEURONTIN [Concomitant]
  52. PREDNISONE TAB [Concomitant]
  53. FRAGMIN [Concomitant]
  54. LOVENOX [Concomitant]

REACTIONS (15)
  - ADVERSE EVENT [None]
  - BURNING SENSATION [None]
  - DEFORMITY [None]
  - ERYTHEMA [None]
  - GENERAL PHYSICAL HEALTH DETERIORATION [None]
  - JOINT RANGE OF MOTION DECREASED [None]
  - JOINT STIFFNESS [None]
  - MYALGIA [None]
  - NEPHROGENIC SYSTEMIC FIBROSIS [None]
  - OEDEMA PERIPHERAL [None]
  - PAIN [None]
  - PAIN IN EXTREMITY [None]
  - RASH ERYTHEMATOUS [None]
  - SKIN FIBROSIS [None]
  - SKIN HYPERTROPHY [None]
